FAERS Safety Report 24015876 (Version 2)
Quarter: 2024Q3

REPORT INFORMATION
  Report Type: Spontaneous
  Country: MY (occurrence: MY)
  Receive Date: 20240626
  Receipt Date: 20240715
  Transmission Date: 20241016
  Serious: Yes (Other)
  Sender: PFIZER
  Company Number: MY-PFIZER INC-202400200303

PATIENT
  Age: 38 Year
  Sex: Male

DRUGS (1)
  1. ERAXIS [Suspect]
     Active Substance: ANIDULAFUNGIN
     Indication: Sepsis
     Dosage: 200 MG, 1X/DAY
     Route: 042

REACTIONS (3)
  - Dyspnoea [Recovered/Resolved]
  - Pain [Recovered/Resolved]
  - Off label use [Unknown]
